FAERS Safety Report 10427663 (Version 1)
Quarter: 2014Q3

REPORT INFORMATION
  Report Type: Spontaneous
  Country: JP (occurrence: JP)
  Receive Date: 20140903
  Receipt Date: 20140903
  Transmission Date: 20150326
  Serious: No
  Sender: FDA-Public Use
  Company Number: PHHY2014JP110799

PATIENT
  Age: 67 Year
  Sex: Female

DRUGS (3)
  1. PPI//OMEPRAZOLE [Concomitant]
     Dosage: UNK UKN, UNK
  2. TASIGNA [Suspect]
     Active Substance: NILOTINIB
     Indication: CHRONIC MYELOID LEUKAEMIA
     Dosage: 300 MG, BID
  3. MAGNESIUM OXIDE. [Concomitant]
     Active Substance: MAGNESIUM OXIDE
     Dosage: UNK UKN, UNK

REACTIONS (1)
  - Rash [Unknown]
